FAERS Safety Report 7328294-3 (Version None)
Quarter: 2011Q1

REPORT INFORMATION
  Report Type: 
  Country: None (occurrence: None)
  Receive Date: 20110303
  Receipt Date: 20110225
  Transmission Date: 20110831
  Serious: Yes (Death)
  Sender: FDA-Public Use
  Company Number: CN-NAPPMUNDI-MAG-2010-0001322

PATIENT
  Age: 60 Year
  Sex: Female

DRUGS (1)
  1. MORPHINE SULFATE [Suspect]
     Indication: PAIN
     Dosage: 30 MG, Q12H
     Route: 048
     Dates: start: 20100730

REACTIONS (2)
  - NEOPLASM MALIGNANT [None]
  - HYPERHIDROSIS [None]
